FAERS Safety Report 20756334 (Version 3)
Quarter: 2024Q2

REPORT INFORMATION
  Report Type: Other
  Country: CH (occurrence: None)
  Receive Date: 20220427
  Receipt Date: 20240426
  Transmission Date: 20240715
  Serious: Yes (Hospitalization)
  Sender: FDA-Public Use
  Company Number: CH-ROCHE-3080114

PATIENT
  Age: 5 Year
  Sex: Male
  Weight: 18 kg

DRUGS (9)
  1. EMICIZUMAB [Suspect]
     Active Substance: EMICIZUMAB
     Indication: Haemophilia A without inhibitors
     Route: 058
     Dates: start: 20211103, end: 20211124
  2. EMICIZUMAB [Suspect]
     Active Substance: EMICIZUMAB
     Route: 058
     Dates: start: 20211201
  3. ELOCTA [Concomitant]
     Active Substance: EFMOROCTOCOG ALFA
     Indication: Urticaria
     Route: 040
     Dates: start: 20221125, end: 20221128
  4. DAFALGAN [Concomitant]
     Active Substance: ACETAMINOPHEN
     Indication: Urticaria
     Route: 048
     Dates: start: 20221125, end: 20221128
  5. DAFALGAN [Concomitant]
     Active Substance: ACETAMINOPHEN
     Indication: Ear pain
     Route: 048
     Dates: start: 20240129, end: 20240130
  6. CELEBREX [Concomitant]
     Active Substance: CELECOXIB
     Indication: Urticaria
     Route: 048
     Dates: start: 20221124, end: 20221129
  7. PREDNISOLONE [Concomitant]
     Active Substance: PREDNISOLONE
     Indication: Urticaria
     Route: 048
     Dates: start: 20221126, end: 20221129
  8. AMOXICILLIN [Concomitant]
     Active Substance: AMOXICILLIN
     Indication: Ear infection
     Route: 048
     Dates: start: 20230207, end: 20230217
  9. TETRAVAC ACELLULAIRE [Concomitant]
     Active Substance: DIPHTHERIA AND TETANUS TOXOIDS AND ACELLULAR PERTUSSIS ADSORBED AND INACTIVATED POLIOVIRUS VACCINE
     Route: 030
     Dates: start: 20240415, end: 20240415

REACTIONS (2)
  - Concussion [Recovered/Resolved]
  - Pyrexia [Recovered/Resolved]

NARRATIVE: CASE EVENT DATE: 20220204
